FAERS Safety Report 7444674-X (Version None)
Quarter: 2011Q2

REPORT INFORMATION
  Report Type: 
  Country: None (occurrence: None)
  Receive Date: 20110429
  Receipt Date: 20110419
  Transmission Date: 20111010
  Serious: Yes (Other)
  Sender: FDA-Public Use
  Company Number: FI-NOVOPROD-326834

PATIENT
  Age: 65 Year
  Sex: Male
  Weight: 154 kg

DRUGS (6)
  1. JANUVIA [Concomitant]
     Indication: DIABETES MELLITUS
     Dosage: 100 MG, QD
     Route: 048
     Dates: end: 20100101
  2. VICTOZA [Suspect]
     Indication: TYPE 2 DIABETES MELLITUS
     Dosage: UNK
     Route: 065
     Dates: start: 20100101
  3. NOVORAPID [Concomitant]
     Indication: DIABETES MELLITUS
     Dosage: 20-50 IU AT MEALS
     Route: 058
  4. LANTUS [Concomitant]
     Dosage: 150 IU, QD
     Route: 058
  5. LANTUS [Concomitant]
     Indication: DIABETES MELLITUS
     Dosage: 40 IU, QD
     Route: 058
  6. LANTUS [Concomitant]
     Dosage: 60 IU, QD
     Route: 058

REACTIONS (1)
  - ATRIAL FIBRILLATION [None]
